FAERS Safety Report 9163492 (Version 3)
Quarter: 2013Q2

REPORT INFORMATION
  Report Type: Spontaneous
  Country: US (occurrence: US)
  Receive Date: 20130314
  Receipt Date: 20130501
  Transmission Date: 20140414
  Serious: No
  Sender: FDA-Public Use
  Company Number: US-PFIZER INC-2013085509

PATIENT
  Age: 79 Year
  Sex: Female
  Weight: 49.89 kg

DRUGS (2)
  1. LYRICA [Suspect]
     Indication: NEURALGIA
     Dosage: 75 MG, 1X/DAY AT BEDTIME
     Route: 048
     Dates: start: 20120329, end: 201203
  2. LYRICA [Suspect]
     Indication: ARTHRALGIA

REACTIONS (5)
  - Swollen tongue [Not Recovered/Not Resolved]
  - Dysphagia [Unknown]
  - Tooth disorder [Unknown]
  - Speech disorder [Not Recovered/Not Resolved]
  - Off label use [Unknown]
